APPROVED DRUG PRODUCT: CIPROFLOXACIN HYDROCHLORIDE
Active Ingredient: CIPROFLOXACIN HYDROCHLORIDE
Strength: EQ 250MG BASE
Dosage Form/Route: TABLET;ORAL
Application: A208921 | Product #001 | TE Code: AB
Applicant: YILING PHARMACEUTICAL LTD
Approved: Jun 22, 2018 | RLD: No | RS: No | Type: RX